FAERS Safety Report 17619668 (Version 2)
Quarter: 2020Q2

REPORT INFORMATION
  Report Type: Spontaneous
  Country: US (occurrence: US)
  Receive Date: 20200403
  Receipt Date: 20200415
  Transmission Date: 20200713
  Serious: No
  Sender: FDA-Public Use
  Company Number: US-BION-008637

PATIENT
  Age: 79 Year
  Sex: Female

DRUGS (3)
  1. IRBESARTAN. [Concomitant]
     Active Substance: IRBESARTAN
     Indication: RENAL DISORDER
  2. METOPROLOL. [Concomitant]
     Active Substance: METOPROLOL
     Indication: HYPERTENSION
  3. ALEVE [Suspect]
     Active Substance: NAPROXEN SODIUM
     Indication: PAIN
     Dates: start: 20200313, end: 20200313

REACTIONS (4)
  - Pruritus [Unknown]
  - Erythema [Unknown]
  - Burning sensation [Unknown]
  - Swelling [Unknown]

NARRATIVE: CASE EVENT DATE: 20200313
